FAERS Safety Report 10908698 (Version 2)
Quarter: 2015Q1

REPORT INFORMATION
  Report Type: Spontaneous
  Country: ES (occurrence: None)
  Receive Date: 20150309
  Receipt Date: 20150324
  Transmission Date: 20150721
  Serious: Yes (Other)
  Sender: FDA-Public Use
  Company Number: KAD201503-000419

PATIENT
  Age: 61 Year
  Sex: Female

DRUGS (3)
  1. PEGINTERFERON-ALFA-2B [Suspect]
     Active Substance: PEGINTERFERON ALFA-2B
     Indication: CHRONIC HEPATITIS C
     Dates: start: 2004
  2. TELAPREVIR (TELAPREVIR) [Suspect]
     Active Substance: TELAPREVIR
     Indication: CHRONIC HEPATITIS C
     Dates: start: 201201
  3. RIBAVIRIN. [Suspect]
     Active Substance: RIBAVIRIN
     Indication: CHRONIC HEPATITIS C
     Dosage: 800
     Dates: start: 2004

REACTIONS (3)
  - Leukopenia [None]
  - No therapeutic response [None]
  - Toxic skin eruption [None]
